FAERS Safety Report 7920534-2 (Version None)
Quarter: 2011Q4

REPORT INFORMATION
  Report Type: 
  Country: None (occurrence: None)
  Receive Date: 20111117
  Receipt Date: 20111110
  Transmission Date: 20120403
  Serious: No
  Sender: FDA-Public Use
  Company Number: PHHY2011DE59943

PATIENT
  Sex: Female

DRUGS (3)
  1. EXTAVIA [Suspect]
     Dosage: 250 UG, QOD
     Route: 058
  2. EXTAVIA [Suspect]
     Indication: MULTIPLE SCLEROSIS
     Dosage: 250 UG, QOD
     Route: 058
     Dates: start: 20110527, end: 20110620
  3. EXTAVIA [Suspect]
     Dosage: 187.5 UG, QOD
     Route: 058
     Dates: start: 20110101

REACTIONS (4)
  - PARESIS [None]
  - BLEEDING TIME PROLONGED [None]
  - IMPAIRED HEALING [None]
  - MUSCLE SPASTICITY [None]
